FAERS Safety Report 5285714-6 (Version None)
Quarter: 2007Q1

REPORT INFORMATION
  Report Type: 
  Country: None (occurrence: None)
  Receive Date: 20070126
  Receipt Date: 20061109
  Transmission Date: 20070707
  Serious: No
  Sender: FDA-Public Use
  Company Number: 2006-BP-13137BP

PATIENT
  Sex: Male

DRUGS (2)
  1. APTIVUS/RITONAVIR CAPSULES (TIPRANAVIR W/RITONAVIR) [Suspect]
     Indication: HIV INFECTION
     Dosage: (SEE TEXT,TPV/RTV 250MG/100MG),PO
     Route: 048
     Dates: start: 20060101, end: 20060101
  2. T20 (ENFUVIRTIDE) [Concomitant]

REACTIONS (1)
  - HAEMORRHAGIC DIATHESIS [None]
